FAERS Safety Report 16993249 (Version 1)
Quarter: 2019Q4

REPORT INFORMATION
  Report Type: Spontaneous
  Country: US (occurrence: US)
  Receive Date: 20191104
  Receipt Date: 20191104
  Transmission Date: 20200122
  Serious: Yes (Hospitalization)
  Sender: FDA-Public Use
  Company Number: None

PATIENT
  Age: 55 Year
  Sex: Female
  Weight: 56.7 kg

DRUGS (11)
  1. MIRTAZEPINE 15 MG QHS [Concomitant]
  2. ARIPIPRAZOLE 20 MG QHS [Concomitant]
  3. ALPRAZOLAM 1 MG BID PRN [Concomitant]
  4. LEVOTHYROXINE 50 MCG DAILY [Concomitant]
  5. MONTELUKAST 10 MG DAILY [Concomitant]
  6. BELSOMRA [Suspect]
     Active Substance: SUVOREXANT
     Indication: INSOMNIA
     Dosage: ?          OTHER FREQUENCY:HS PRN;?
     Route: 048
     Dates: start: 20191028, end: 20191103
  7. HYDROCODONE/APAP 10/325 4-5 TABLETS DAILY [Concomitant]
  8. LORATIDINE 10 MG DAILY [Concomitant]
  9. DULOXETINE 120 MG DAILY [Concomitant]
  10. ATENOLOL 25 MG QHS [Concomitant]
  11. GABAPENTIN 600 MG BID [Concomitant]

REACTIONS (5)
  - Nightmare [None]
  - Hallucination, visual [None]
  - Middle insomnia [None]
  - Paranoia [None]
  - Screaming [None]

NARRATIVE: CASE EVENT DATE: 20191103
